FAERS Safety Report 21872011 (Version 3)
Quarter: 2023Q4

REPORT INFORMATION
  Report Type: Report from Study
  Country: DE (occurrence: DE)
  Receive Date: 20230117
  Receipt Date: 20231020
  Transmission Date: 20240109
  Serious: Yes (Hospitalization, Other)
  Sender: FDA-Public Use
  Company Number: DE-ABBVIE-4263415

PATIENT
  Age: 73 Year
  Sex: Female

DRUGS (21)
  1. METHOTREXATE SODIUM [Suspect]
     Active Substance: METHOTREXATE SODIUM
     Dosage: 20MG, WEEKLY
     Dates: start: 201703, end: 20230307
  2. METHOTREXATE SODIUM [Suspect]
     Active Substance: METHOTREXATE SODIUM
     Dosage: UNK
     Dates: start: 20230307
  3. RINVOQ [Suspect]
     Active Substance: UPADACITINIB
     Indication: Rheumatoid arthritis
     Dosage: 15 MG, DAILY
     Route: 048
     Dates: start: 202102, end: 202212
  4. GLIMEPIRIDE [Concomitant]
     Active Substance: GLIMEPIRIDE
  5. LERCANIDIPINE [Concomitant]
     Active Substance: LERCANIDIPINE
  6. VITAMIN D NOS [Concomitant]
     Active Substance: VITAMIN D NOS
  7. FOLIC ACID [Concomitant]
     Active Substance: FOLIC ACID
  8. PEPPERMINT OIL [Concomitant]
     Active Substance: PEPPERMINT OIL
  9. BISOPROLOL [Concomitant]
     Active Substance: BISOPROLOL\BISOPROLOL FUMARATE
  10. NOVALGIN (METAMIZOLE SODIUM) [Concomitant]
     Active Substance: METAMIZOLE SODIUM
  11. IRBESARTAN [Concomitant]
     Active Substance: IRBESARTAN
  12. PANTOZOL [Concomitant]
     Active Substance: PANTOPRAZOLE SODIUM
  13. PREGABALIN [Concomitant]
     Active Substance: PREGABALIN
  14. ELIQUIS [Concomitant]
     Active Substance: APIXABAN
  15. NORSPAN [Concomitant]
     Active Substance: BUPRENORPHINE
  16. BETAHISTIN [BETAHISTINE MESILATE] [Concomitant]
  17. ALLOPURINOL [Concomitant]
     Active Substance: ALLOPURINOL
  18. MAGNESIUM [Concomitant]
     Active Substance: MAGNESIUM
  19. PREDNISONE [Concomitant]
     Active Substance: PREDNISONE
  20. TORSEMIDE [Concomitant]
     Active Substance: TORSEMIDE
  21. LEVOTHYROXINE [Concomitant]
     Active Substance: LEVOTHYROXINE

REACTIONS (9)
  - Ophthalmic herpes zoster [Recovered/Resolved]
  - Streptococcal infection [Recovered/Resolved]
  - Skin bacterial infection [Recovered/Resolved]
  - Impaired healing [Recovered/Resolved]
  - Device loosening [Recovered/Resolved]
  - Chondrocalcinosis [Recovered/Resolved]
  - Chronic kidney disease [Unknown]
  - COVID-19 [Unknown]
  - Anaemia [Unknown]

NARRATIVE: CASE EVENT DATE: 20220208
